FAERS Safety Report 7819771-7 (Version None)
Quarter: 2011Q4

REPORT INFORMATION
  Report Type: 
  Country: None (occurrence: None)
  Receive Date: 20111018
  Receipt Date: 20101102
  Transmission Date: 20120403
  Serious: No
  Sender: FDA-Public Use
  Company Number: US-ASTRAZENECA-2010SE52305

PATIENT
  Age: 75 Year
  Sex: Female

DRUGS (8)
  1. BYSTOLIC [Concomitant]
  2. PREMARIN [Concomitant]
  3. MAGNESIUM [Concomitant]
  4. ASPIRIN [Concomitant]
  5. VITAMIN D [Concomitant]
  6. CALCIUM CARBONATE [Concomitant]
  7. ASCORBIC ACID [Concomitant]
  8. SYMBICORT [Suspect]
     Indication: DYSPNOEA
     Dosage: 80/4.5 MCG-2 BID
     Route: 055
     Dates: start: 20100901, end: 20100101

REACTIONS (2)
  - DRUG DOSE OMISSION [None]
  - DYSPNOEA [None]
